FAERS Safety Report 4616243-8 (Version None)
Quarter: 2005Q1

REPORT INFORMATION
  Report Type: 
  Country: None (occurrence: None)
  Receive Date: 20050321
  Receipt Date: 20050308
  Transmission Date: 20050727
  Serious: Yes (Hospitalization, Other)
  Sender: FDA-Public Use
  Company Number: HQWYE018610MAR05

PATIENT
  Age: 82 Year
  Sex: Female
  Weight: 51.76 kg

DRUGS (2)
  1. ADVIL [Suspect]
     Indication: NECK PAIN
     Dosage: 1 LIQUI-GEL ONCE TO TWICE DAILY AS NEEDED, ORAL
     Route: 048
     Dates: start: 20040901, end: 20050303
  2. NORVASC [Suspect]
     Indication: HYPERTENSION
     Dosage: 1 TABLET 1X PER 1 DAY, ORAL
     Route: 048
     Dates: start: 20050219, end: 20050305

REACTIONS (2)
  - DRUG INTERACTION [None]
  - OEDEMA PERIPHERAL [None]
